FAERS Safety Report 22518080 (Version 20)
Quarter: 2025Q2

REPORT INFORMATION
  Report Type: Spontaneous
  Country: JP (occurrence: JP)
  Receive Date: 20230605
  Receipt Date: 20250411
  Transmission Date: 20250717
  Serious: Yes (Death, Life-Threatening, Hospitalization, Other)
  Sender: AMGEN
  Company Number: JP-Vifor (International) Inc.-VIT-2023-03917

PATIENT
  Age: 70 Year
  Sex: Female
  Weight: 36 kg

DRUGS (24)
  1. TAVNEOS [Suspect]
     Active Substance: AVACOPAN
     Indication: Microscopic polyangiitis
     Dosage: 30,MG,BID
     Route: 048
     Dates: start: 20230418, end: 20230523
  2. ISCOTIN [Suspect]
     Active Substance: ISONIAZID
     Indication: Latent tuberculosis
     Dosage: 200 MILLIGRAM, QD
     Route: 048
     Dates: start: 20230524
  3. SULFAMETHOXAZOLE\TRIMETHOPRIM [Suspect]
     Active Substance: SULFAMETHOXAZOLE\TRIMETHOPRIM
     Indication: Antifungal prophylaxis
     Dosage: 2 DOSAGE FORM, QD
     Route: 048
     Dates: start: 20230418, end: 20230524
  4. NALFURAFINE HYDROCHLORIDE [Suspect]
     Active Substance: NALFURAFINE HYDROCHLORIDE
     Indication: Pruritus
     Dosage: PERORAL MEDICINE
     Route: 048
     Dates: start: 20230602, end: 20230605
  5. NALFURAFINE HYDROCHLORIDE [Suspect]
     Active Substance: NALFURAFINE HYDROCHLORIDE
     Dosage: PERORAL MEDICINE
     Route: 048
     Dates: start: 20230606, end: 20230714
  6. LANSOPRAZOLE [Suspect]
     Active Substance: LANSOPRAZOLE
     Indication: Prophylaxis against gastrointestinal ulcer
     Dosage: 15 MILLIGRAM, QD
     Route: 048
     Dates: start: 20230401, end: 2023
  7. PREDONINE [Suspect]
     Active Substance: PREDNISOLONE
     Indication: Microscopic polyangiitis
     Dosage: 40 MILLIGRAM, QD
     Route: 065
  8. PREDONINE [Suspect]
     Active Substance: PREDNISOLONE
     Dosage: 20,MG,QD
     Route: 065
     Dates: start: 20230420
  9. PREDONINE [Suspect]
     Active Substance: PREDNISOLONE
     Dosage: 10,MG,QD
     Route: 065
     Dates: start: 20230421, end: 20230522
  10. PREDONINE [Suspect]
     Active Substance: PREDNISOLONE
     Dosage: 7.5,MG,QD
     Route: 065
     Dates: start: 20230523, end: 20230529
  11. PREDONINE [Suspect]
     Active Substance: PREDNISOLONE
     Dosage: 5,MG,QD
     Route: 065
     Dates: start: 20230530, end: 20230612
  12. PREDONINE [Suspect]
     Active Substance: PREDNISOLONE
     Dosage: 7.5,MG,QD
     Route: 065
     Dates: start: 20230613, end: 20230822
  13. PREDONINE [Suspect]
     Active Substance: PREDNISOLONE
     Route: 065
     Dates: start: 20230822
  14. PREDONINE [Suspect]
     Active Substance: PREDNISOLONE
     Route: 040
     Dates: start: 20231129
  15. PREDONINE [Suspect]
     Active Substance: PREDNISOLONE
     Dosage: 40,MG,QD
     Route: 065
     Dates: start: 20230823, end: 20230827
  16. PREDONINE [Suspect]
     Active Substance: PREDNISOLONE
     Dosage: 20,MG,QD
     Route: 065
     Dates: start: 20230828, end: 20230901
  17. PREDONINE [Suspect]
     Active Substance: PREDNISOLONE
     Dosage: 10,MG,QD
     Route: 065
     Dates: start: 20230909, end: 20230921
  18. PREDONINE [Suspect]
     Active Substance: PREDNISOLONE
     Dosage: 7.5,MG,QD
     Route: 065
     Dates: start: 20230922
  19. PYRIDOXAL [Concomitant]
     Active Substance: PYRIDOXAL
     Indication: Vitamin supplementation
     Dosage: 10,MG,QD
     Route: 048
     Dates: start: 20230524
  20. PERINDOPRIL ERBUMINE [Concomitant]
     Active Substance: PERINDOPRIL ERBUMINE
     Indication: Hypertension
     Dosage: 4,MG,QD
     Route: 048
     Dates: start: 20230406
  21. LUNESTA [Concomitant]
     Active Substance: ESZOPICLONE
     Indication: Insomnia
     Dosage: 2 MILLIGRAM, QD
     Route: 048
     Dates: start: 20230406
  22. RISEDRONATE SODIUM [Concomitant]
     Active Substance: RISEDRONATE SODIUM
     Indication: Osteoporosis
     Dosage: 17.5,MG,QW
     Route: 048
     Dates: start: 20230411
  23. ELDECALCITOL [Concomitant]
     Active Substance: ELDECALCITOL
     Indication: Osteoporosis
     Dosage: .75,MUG,QD
     Route: 048
     Dates: start: 20230411
  24. RITUXIMAB [Concomitant]
     Active Substance: RITUXIMAB
     Dosage: 500 MILLIGRAM, QWK
     Route: 042
     Dates: start: 202305

REACTIONS (6)
  - Multiple organ dysfunction syndrome [Fatal]
  - Vanishing bile duct syndrome [Fatal]
  - Hepatic fibrosis [Fatal]
  - Hepatic failure [Fatal]
  - Pneumocystis jirovecii pneumonia [Recovering/Resolving]
  - Hypercholesterolaemia [Recovering/Resolving]

NARRATIVE: CASE EVENT DATE: 20230523
